FAERS Safety Report 16059775 (Version 2)
Quarter: 2019Q1

REPORT INFORMATION
  Report Type: Spontaneous
  Country: US (occurrence: US)
  Receive Date: 20190311
  Receipt Date: 20190328
  Transmission Date: 20190418
  Serious: No
  Sender: FDA-Public Use
  Company Number: US-ASTRAZENECA-2019SE36037

PATIENT
  Sex: Female

DRUGS (18)
  1. PULMICORT FLEXHALER [Suspect]
     Active Substance: BUDESONIDE
     Indication: CHRONIC OBSTRUCTIVE PULMONARY DISEASE
     Route: 055
  2. RAMIPRIL. [Concomitant]
     Active Substance: RAMIPRIL
     Dosage: 2.5
     Route: 048
  3. TRAMADOL. [Concomitant]
     Active Substance: TRAMADOL
     Indication: PAIN
  4. CYCLOBENZAPRINE. [Concomitant]
     Active Substance: CYCLOBENZAPRINE
     Indication: MUSCLE SPASMS
  5. INCRUSE ELLIPTA [Concomitant]
     Active Substance: UMECLIDINIUM BROMIDE
     Indication: CHRONIC OBSTRUCTIVE PULMONARY DISEASE
     Dosage: 62.85 DAILY
     Route: 055
  6. TUMS [Concomitant]
     Active Substance: CALCIUM CARBONATE
     Route: 065
  7. PAXIL [Concomitant]
     Active Substance: PAROXETINE HYDROCHLORIDE
     Route: 048
  8. CALCIUM/CHOLECALCIFEROL [Concomitant]
     Indication: BONE DISORDER
  9. TYLENOL [Concomitant]
     Active Substance: ACETAMINOPHEN
  10. PULMICORT FLEXHALER [Suspect]
     Active Substance: BUDESONIDE
     Indication: DYSPNOEA
     Dosage: ONE INHALATION ONCE A DAY
     Route: 055
  11. METOPROLOL TARTRATE. [Suspect]
     Active Substance: METOPROLOL TARTRATE
     Indication: BLOOD PRESSURE ABNORMAL
     Route: 048
  12. PULMICORT FLEXHALER [Suspect]
     Active Substance: BUDESONIDE
     Indication: DYSPNOEA
     Route: 055
  13. OXYGEN. [Concomitant]
     Active Substance: OXYGEN
  14. SIMVASTATIN. [Concomitant]
     Active Substance: SIMVASTATIN
     Route: 048
  15. TRAZODONE [Concomitant]
     Active Substance: TRAZODONE HYDROCHLORIDE
     Indication: SLEEP DISORDER
  16. PULMICORT FLEXHALER [Suspect]
     Active Substance: BUDESONIDE
     Indication: CHRONIC OBSTRUCTIVE PULMONARY DISEASE
     Dosage: ONE INHALATION ONCE A DAY
     Route: 055
  17. BENADRYL [Concomitant]
     Active Substance: DIPHENHYDRAMINE HYDROCHLORIDE
     Route: 065
  18. PEPTO-BISMOL [Concomitant]
     Active Substance: BISMUTH SUBSALICYLATE
     Route: 065

REACTIONS (8)
  - Blood pressure abnormal [Unknown]
  - Device failure [Unknown]
  - Back pain [Unknown]
  - Dyspnoea [Unknown]
  - Muscle spasms [Unknown]
  - Circumstance or information capable of leading to medication error [Unknown]
  - Product dose omission [Unknown]
  - Intentional product misuse [Not Recovered/Not Resolved]
